FAERS Safety Report 22202204 (Version 12)
Quarter: 2025Q3

REPORT INFORMATION
  Report Type: Spontaneous
  Country: US (occurrence: US)
  Receive Date: 20230412
  Receipt Date: 20250712
  Transmission Date: 20251020
  Serious: Yes (Other)
  Sender: AMGEN
  Company Number: US-AMGEN-USASP2023060128

PATIENT
  Sex: Female

DRUGS (32)
  1. OTEZLA [Suspect]
     Active Substance: APREMILAST
     Indication: Psoriatic arthropathy
     Dosage: 30 MILLIGRAM, BID
     Route: 048
  2. OTEZLA [Suspect]
     Active Substance: APREMILAST
     Indication: Psoriasis
     Dosage: 30 MILLIGRAM, BID
     Route: 048
     Dates: start: 20230406
  3. BUSPIRONE [Concomitant]
     Active Substance: BUSPIRONE HYDROCHLORIDE
  4. CLOBETASOL [Concomitant]
     Active Substance: CLOBETASOL
  5. FOLIC ACID [Concomitant]
     Active Substance: FOLIC ACID
  6. FUROSEMIDE [Concomitant]
     Active Substance: FUROSEMIDE
  7. HUMULIN R [Concomitant]
     Active Substance: INSULIN HUMAN
  8. HYOSCYAMINE [Concomitant]
     Active Substance: HYOSCYAMINE
  9. LORAZEPAM [Concomitant]
     Active Substance: LORAZEPAM
  10. MELOXICAM [Concomitant]
     Active Substance: MELOXICAM
  11. MONTELUKAST [Concomitant]
     Active Substance: MONTELUKAST
  12. NITROGLYCERIN [Concomitant]
     Active Substance: NITROGLYCERIN
  13. OXYBUTYNIN [Concomitant]
     Active Substance: OXYBUTYNIN
  14. OXYCODONE [Concomitant]
     Active Substance: OXYCODONE
  15. RANOLAZINE [Concomitant]
     Active Substance: RANOLAZINE
  16. ROPINIROLE [Concomitant]
     Active Substance: ROPINIROLE
  17. ROSUVASTATIN [Concomitant]
     Active Substance: ROSUVASTATIN
  18. SKYRIZI [Concomitant]
     Active Substance: RISANKIZUMAB-RZAA
  19. SOTALOL HYDROCHLORIDE [Concomitant]
     Active Substance: SOTALOL HYDROCHLORIDE
  20. SUCRALFATE [Concomitant]
     Active Substance: SUCRALFATE
  21. CICLOPIROX [Concomitant]
     Active Substance: CICLOPIROX
  22. GABAPENTIN [Concomitant]
     Active Substance: GABAPENTIN
  23. MOMETASONE [Concomitant]
     Active Substance: MOMETASONE
  24. IBUPROFEN [Concomitant]
     Active Substance: IBUPROFEN
     Route: 065
  25. LEVOCETIRIZINE HYDROCHLORIDE [Concomitant]
     Active Substance: LEVOCETIRIZINE HYDROCHLORIDE
     Route: 065
  26. LEXISCAN [Concomitant]
     Active Substance: REGADENOSON
     Route: 065
  27. MIRENA [Concomitant]
     Active Substance: LEVONORGESTREL
     Route: 065
  28. MYOVIEW [Concomitant]
     Active Substance: TECHNETIUM TC-99M TETROFOSMIN
     Route: 065
  29. Norethin [Concomitant]
     Route: 065
  30. PANTOPRAZOLE [Concomitant]
     Active Substance: PANTOPRAZOLE
     Route: 065
  31. DEXAMETHASONE [Concomitant]
     Active Substance: DEXAMETHASONE
  32. DICLOFENAC [Concomitant]
     Active Substance: DICLOFENAC

REACTIONS (4)
  - Psoriatic arthropathy [Not Recovered/Not Resolved]
  - Therapy non-responder [Unknown]
  - Malaise [Not Recovered/Not Resolved]
  - Stress [Not Recovered/Not Resolved]
